FAERS Safety Report 7549142-2 (Version None)
Quarter: 2011Q2

REPORT INFORMATION
  Report Type: 
  Country: None (occurrence: None)
  Receive Date: 20110615
  Receipt Date: 20110601
  Transmission Date: 20111010
  Serious: Yes (Hospitalization, Other)
  Sender: FDA-Public Use
  Company Number: PHHY2010JP35890

PATIENT
  Sex: Female
  Weight: 55 kg

DRUGS (5)
  1. SIMULECT [Suspect]
     Dosage: 20 MG, ONCE/SINGLE
     Route: 042
     Dates: start: 20081130, end: 20081130
  2. NEORAL [Suspect]
     Indication: RENAL TRANSPLANT
     Dosage: 440 MG, DAILY
     Route: 048
     Dates: start: 20081123
  3. PREDNISOLONE [Suspect]
     Dosage: 30 MG, DAILY
     Route: 048
     Dates: start: 20081123
  4. SIMULECT [Suspect]
     Indication: RENAL TRANSPLANT
     Dosage: 20 MG, ONCE/SINGLE
     Route: 042
     Dates: start: 20081126, end: 20081126
  5. BREDININ [Suspect]
     Indication: RENAL TRANSPLANT
     Dosage: 450 MG, UNK
     Route: 048
     Dates: start: 20081123

REACTIONS (4)
  - CEREBRAL INFARCTION [None]
  - PARALYSIS [None]
  - MOYAMOYA DISEASE [None]
  - APHASIA [None]
